FAERS Safety Report 16155670 (Version 3)
Quarter: 2019Q2

REPORT INFORMATION
  Report Type: Spontaneous
  Country: JP (occurrence: JP)
  Receive Date: 20190404
  Receipt Date: 20190427
  Transmission Date: 20190711
  Serious: Yes (Hospitalization)
  Sender: FDA-Public Use
  Company Number: JP-ROCHE-2295340

PATIENT
  Age: 65 Year
  Sex: Female

DRUGS (1)
  1. CELLCEPT [Suspect]
     Active Substance: MYCOPHENOLATE MOFETIL\MYCOPHENOLATE MOFETIL HYDROCHLORIDE
     Indication: SYSTEMIC LUPUS ERYTHEMATOSUS
     Dosage: DOSE INTERVAL UNCERTAINTY
     Route: 048

REACTIONS (4)
  - Neuromyelitis optica spectrum disorder [Recovering/Resolving]
  - Off label use [Unknown]
  - Intentional product use issue [Unknown]
  - Lung infection [Unknown]
